FAERS Safety Report 6546352-8 (Version None)
Quarter: 2010Q1

REPORT INFORMATION
  Report Type: 
  Country: None (occurrence: None)
  Receive Date: 20100115
  Receipt Date: 20091231
  Transmission Date: 20100710
  Serious: No
  Sender: FDA-Public Use
  Company Number: 2009-00913

PATIENT
  Age: 89 Year
  Sex: Male
  Weight: 63.5036 kg

DRUGS (3)
  1. COLD REMEDY GEL SWABS [Suspect]
     Dosage: QID
     Dates: start: 20080216
  2. MICARDIS [Concomitant]
  3. NEXIUM [Concomitant]

REACTIONS (2)
  - AGEUSIA [None]
  - ANOSMIA [None]
